FAERS Safety Report 10028000 (Version 1)
Quarter: 2014Q1

REPORT INFORMATION
  Report Type: Spontaneous
  Country: US (occurrence: US)
  Receive Date: 20140321
  Receipt Date: 20140321
  Transmission Date: 20141002
  Serious: Yes (Other)
  Sender: FDA-Public Use
  Company Number: US-BAXTER-2012BAX008026

PATIENT
  Age: 61 Year
  Sex: Male

DRUGS (7)
  1. RECOMBINATE [Suspect]
     Indication: FACTOR VIII DEFICIENCY
     Route: 040
  2. RECOMBINATE [Suspect]
     Route: 042
  3. RECOMBINATE [Suspect]
  4. RECOMBINATE [Suspect]
  5. MYCOPHENOLATE MOFETIL [Concomitant]
     Indication: IMMUNOSUPPRESSION
     Route: 048
  6. TACROLIMUS [Concomitant]
     Indication: IMMUNOSUPPRESSION
  7. PREDNISONE [Concomitant]
     Indication: IMMUNOSUPPRESSION

REACTIONS (1)
  - Factor VIII inhibition [Unknown]
